FAERS Safety Report 5314156-X (Version None)
Quarter: 2007Q2

REPORT INFORMATION
  Report Type: 
  Country: None (occurrence: None)
  Receive Date: 20070426
  Receipt Date: 20070416
  Transmission Date: 20071010
  Serious: Yes (Other)
  Sender: FDA-Public Use
  Company Number: 16318

PATIENT
  Age: 80 Year
  Sex: Male

DRUGS (9)
  1. HALOPERIDOL [Suspect]
     Indication: MAJOR DEPRESSION
     Dosage: 2 MG DAILY
  2. ORPHENADRINE CITRATE [Suspect]
     Indication: MAJOR DEPRESSION
     Dosage: 100 MG DAILY
  3. AMITRIPTYLINE HCL [Suspect]
     Indication: MAJOR DEPRESSION
     Dosage: 40 MG DAILY
  4. LORAZEPAM [Suspect]
     Indication: MAJOR DEPRESSION
     Dosage: 2 MG DAILY
  5. TAMSULOSIN HCL [Concomitant]
  6. DUTASTERIDE [Concomitant]
  7. INDOBUFEN [Concomitant]
  8. CHOLINE ALFOSCERATE [Concomitant]
  9. OMEPRAZOLE [Concomitant]

REACTIONS (7)
  - AGITATION [None]
  - CONFUSIONAL STATE [None]
  - DELIRIUM [None]
  - HALLUCINATION [None]
  - INSOMNIA [None]
  - PERSECUTORY DELUSION [None]
  - SEDATION [None]
